FAERS Safety Report 6134853-6 (Version None)
Quarter: 2009Q1

REPORT INFORMATION
  Report Type: 
  Country: None (occurrence: None)
  Receive Date: 20090327
  Receipt Date: 20090316
  Transmission Date: 20090719
  Serious: Yes (Life-Threatening, Hospitalization)
  Sender: FDA-Public Use
  Company Number: AU-WYE-H08633309

PATIENT
  Age: 51 Year
  Sex: Male
  Weight: 87 kg

DRUGS (1)
  1. SOMAC [Suspect]
     Route: 048
     Dates: start: 20081001, end: 20081001

REACTIONS (4)
  - ANAPHYLACTIC SHOCK [None]
  - ASTHMA [None]
  - HYPERHIDROSIS [None]
  - HYPOVENTILATION [None]
